FAERS Safety Report 10006627 (Version 1)
Quarter: 2014Q1

REPORT INFORMATION
  Report Type: Spontaneous
  Country: US (occurrence: US)
  Receive Date: 20140313
  Receipt Date: 20140313
  Transmission Date: 20141002
  Serious: No
  Sender: FDA-Public Use
  Company Number: US-PFIZER INC-2014072511

PATIENT
  Age: 57 Year
  Sex: Female

DRUGS (6)
  1. EFFEXOR XR [Suspect]
     Dosage: 150 MG, 2X/DAY
     Route: 048
  2. FOLIC ACID [Suspect]
     Dosage: UNK
  3. CODEIN [Suspect]
     Dosage: UNK
  4. TOPAMAX [Suspect]
     Dosage: UNK
  5. LAMICTAL [Suspect]
     Dosage: UNK
  6. KLONOPIN [Suspect]
     Dosage: UNK

REACTIONS (1)
  - Drug hypersensitivity [Unknown]
